FAERS Safety Report 7044915-7 (Version None)
Quarter: 2010Q4

REPORT INFORMATION
  Report Type: 
  Country: None (occurrence: None)
  Receive Date: 20101014
  Receipt Date: 20100902
  Transmission Date: 20110411
  Serious: Yes (Other)
  Sender: FDA-Public Use
  Company Number: US-BAXTER-2010BH003651

PATIENT
  Age: 39 Year
  Sex: Male
  Weight: 68 kg

DRUGS (15)
  1. HEPARIN SODIUM INJECTION [Suspect]
     Indication: HAEMODIALYSIS
     Route: 042
     Dates: start: 20071001
  2. HEPARIN SODIUM INJECTION [Suspect]
     Route: 042
     Dates: start: 20071001
  3. DILAUDID [Suspect]
     Indication: PAIN
     Route: 042
     Dates: start: 20071020
  4. DILAUDID [Suspect]
     Route: 042
     Dates: start: 20071020
  5. DILAUDID [Suspect]
     Route: 042
     Dates: start: 20071020
  6. DILAUDID [Suspect]
     Route: 042
     Dates: start: 20071020
  7. TORADOL [Suspect]
     Indication: PAIN
     Route: 042
     Dates: start: 20071020
  8. HYDRALAZINE HCL [Concomitant]
     Indication: PRODUCT USED FOR UNKNOWN INDICATION
     Route: 065
  9. DOXAZOSIN MESYLATE [Concomitant]
     Indication: PRODUCT USED FOR UNKNOWN INDICATION
     Route: 065
  10. LISINOPRIL [Concomitant]
     Indication: PRODUCT USED FOR UNKNOWN INDICATION
     Route: 065
  11. AMLODIPINE [Concomitant]
     Indication: PRODUCT USED FOR UNKNOWN INDICATION
     Route: 065
  12. MINOXIDIL [Concomitant]
     Indication: PRODUCT USED FOR UNKNOWN INDICATION
     Route: 065
  13. METOPROLOL [Concomitant]
     Indication: PRODUCT USED FOR UNKNOWN INDICATION
     Route: 065
  14. IRON [Concomitant]
     Indication: PRODUCT USED FOR UNKNOWN INDICATION
     Route: 065
  15. NOVEL ERYTHROPOIESIS STIMULATING PROTEIN [Concomitant]
     Indication: PRODUCT USED FOR UNKNOWN INDICATION
     Route: 065

REACTIONS (4)
  - BLOOD PRESSURE DECREASED [None]
  - HYPERTENSION [None]
  - NECK INJURY [None]
  - SYNCOPE [None]
